FAERS Safety Report 20200705 (Version 2)
Quarter: 2021Q4

REPORT INFORMATION
  Report Type: Spontaneous
  Country: FR (occurrence: FR)
  Receive Date: 20211217
  Receipt Date: 20211230
  Transmission Date: 20220303
  Serious: Yes (Hospitalization, Disabling, Other)
  Sender: FDA-Public Use
  Company Number: FR-009507513-2004-12-0137

PATIENT
  Sex: Male
  Weight: 90 kg

DRUGS (2)
  1. BETAMETHASONE [Suspect]
     Active Substance: BETAMETHASONE
     Dosage: 6 MG QD (THREE 2 MG TABLETS FOR 8 DAYS)
     Route: 048
     Dates: start: 20020816, end: 20020823
  2. LAMALINE (ACETAMINOPHEN\CAFFEINE\OPIUM) [Concomitant]
     Active Substance: ACETAMINOPHEN\CAFFEINE\OPIUM
     Dosage: 1 DAYS (QD)
     Route: 065
     Dates: start: 20151116, end: 20151116

REACTIONS (27)
  - Suicidal ideation [Unknown]
  - Osteonecrosis [Not Recovered/Not Resolved]
  - Persistent depressive disorder [Unknown]
  - Hallucination [Unknown]
  - Appendicectomy [Unknown]
  - Pain in extremity [Not Recovered/Not Resolved]
  - Arteriovenous malformation [Unknown]
  - Pain [Unknown]
  - Femur fracture [Unknown]
  - Pain [Unknown]
  - Hydrocele [Unknown]
  - Sciatica [Unknown]
  - Back pain [Unknown]
  - Sciatica [Unknown]
  - Muscle disorder [Unknown]
  - Neck pain [Unknown]
  - Limb discomfort [Unknown]
  - Burning sensation [Unknown]
  - Paraesthesia [Unknown]
  - Visual impairment [Unknown]
  - Device failure [Recovered/Resolved]
  - Bone fissure [Recovered/Resolved]
  - Sexual dysfunction [Unknown]
  - Libido decreased [Not Recovered/Not Resolved]
  - General physical health deterioration [Unknown]
  - Pain [Unknown]
  - Muscle discomfort [Unknown]

NARRATIVE: CASE EVENT DATE: 20021101
